FAERS Safety Report 6122080-8 (Version None)
Quarter: 2009Q1

REPORT INFORMATION
  Report Type: 
  Country: None (occurrence: None)
  Receive Date: 20090316
  Receipt Date: 20090316
  Transmission Date: 20090719
  Serious: No
  Sender: FDA-Public Use
  Company Number: None

PATIENT
  Sex: Male
  Weight: 74.55 kg

DRUGS (8)
  1. SIMVASTATIN [Suspect]
     Dosage: 20MG TABLET 20 MG QHS ORAL
     Route: 048
     Dates: start: 20081128, end: 20090313
  2. ABILIFY [Concomitant]
  3. ANAFRANIL [Concomitant]
  4. BUSPAR [Concomitant]
  5. CLONAZEPAM [Concomitant]
  6. LUVOX [Concomitant]
  7. RISPERIDONE [Concomitant]
  8. ZANTAC (RANITIDINE HCL) [Concomitant]

REACTIONS (1)
  - HEPATOTOXICITY [None]
